FAERS Safety Report 18463026 (Version 3)
Quarter: 2020Q4

REPORT INFORMATION
  Report Type: Spontaneous
  Country: ZA (occurrence: ZA)
  Receive Date: 20201104
  Receipt Date: 20201116
  Transmission Date: 20210114
  Serious: Yes (Life-Threatening, Hospitalization, Other)
  Sender: FDA-Public Use
  Company Number: ZA-PFIZER INC-2020427244

PATIENT
  Age: 36 Year
  Sex: Female

DRUGS (10)
  1. AMIODARONE [Interacting]
     Active Substance: AMIODARONE
     Dosage: UNK
  2. RANITIDINE. [Interacting]
     Active Substance: RANITIDINE
     Dosage: 150 MG, 2X/DAY
     Route: 048
     Dates: start: 19981201
  3. TRIMETHOPRIM SULFAMETHOXAZOLE [Interacting]
     Active Substance: SULFAMETHOXAZOLE\TRIMETHOPRIM
     Dosage: UNK
     Dates: start: 199811
  4. METOCLOPRAMIDE. [Interacting]
     Active Substance: METOCLOPRAMIDE
     Dosage: UNK
     Dates: start: 199811
  5. NITROFURANTOIN. [Interacting]
     Active Substance: NITROFURANTOIN
     Dosage: UNK
     Dates: start: 199811
  6. CISAPRIDE [Interacting]
     Active Substance: CISAPRIDE
     Dosage: 10 MG, 3X/DAY
     Dates: start: 19981201, end: 19981207
  7. ONDANSETRON [Interacting]
     Active Substance: ONDANSETRON
     Dosage: UNK
     Dates: start: 199811
  8. TETRACYCLINE HCL [Suspect]
     Active Substance: TETRACYCLINE HYDROCHLORIDE
     Dosage: UNK
     Dates: start: 199811
  9. LOPERAMIDE [Interacting]
     Active Substance: LOPERAMIDE
     Dosage: UNK
     Dates: start: 199811
  10. METRONIDAZOLE. [Interacting]
     Active Substance: METRONIDAZOLE
     Dosage: UNK
     Dates: start: 199811

REACTIONS (14)
  - Conduction disorder [Not Recovered/Not Resolved]
  - Gastrointestinal inflammation [Not Recovered/Not Resolved]
  - Ventricular tachyarrhythmia [Recovered/Resolved]
  - Decreased appetite [Not Recovered/Not Resolved]
  - Drug interaction [Recovered/Resolved]
  - Shock [Recovered/Resolved]
  - Nausea [Not Recovered/Not Resolved]
  - Vomiting [Recovered/Resolved]
  - Gastrointestinal disorder [Not Recovered/Not Resolved]
  - Tachyarrhythmia [Not Recovered/Not Resolved]
  - Electrocardiogram QT prolonged [Recovered/Resolved]
  - Arrhythmia [Recovered/Resolved]
  - Torsade de pointes [Recovered/Resolved]
  - Bradyarrhythmia [Not Recovered/Not Resolved]

NARRATIVE: CASE EVENT DATE: 1998
